FAERS Safety Report 21347313 (Version 23)
Quarter: 2024Q4

REPORT INFORMATION
  Report Type: Report from Study
  Country: DE (occurrence: DE)
  Receive Date: 20220919
  Receipt Date: 20241105
  Transmission Date: 20250115
  Serious: Yes (Life-Threatening, Hospitalization, Other)
  Sender: SANOFI AVENTIS
  Company Number: DE-SA-SAC20211230001248

PATIENT
  Age: 69 Year
  Sex: Male
  Weight: 78 kg

DRUGS (61)
  1. ISATUXIMAB [Suspect]
     Active Substance: ISATUXIMAB
     Indication: Plasma cell myeloma refractory
     Dosage: 680 MG (D1, D8, D15, D22)
     Route: 041
     Dates: start: 20211122, end: 20211213
  2. ISATUXIMAB [Suspect]
     Active Substance: ISATUXIMAB
     Dosage: 680 MG, D15
     Route: 041
     Dates: start: 20211220, end: 20211220
  3. ISATUXIMAB [Suspect]
     Active Substance: ISATUXIMAB
     Dosage: 680 MG, D1, D15
     Route: 041
     Dates: start: 20220125, end: 20220208
  4. ISATUXIMAB [Suspect]
     Active Substance: ISATUXIMAB
     Dosage: 680 MG, D1, D15
     Route: 041
     Dates: start: 20220222, end: 20220308
  5. ISATUXIMAB [Suspect]
     Active Substance: ISATUXIMAB
     Dosage: 680 MG, BIW
     Route: 041
     Dates: start: 20220322, end: 20220405
  6. ISATUXIMAB [Suspect]
     Active Substance: ISATUXIMAB
     Dosage: 680 MG, BIW
     Route: 041
     Dates: start: 20220419, end: 20220503
  7. ISATUXIMAB [Suspect]
     Active Substance: ISATUXIMAB
     Dosage: 680 MG, D1, D15
     Route: 041
     Dates: start: 20220517, end: 20220531
  8. ISATUXIMAB [Suspect]
     Active Substance: ISATUXIMAB
     Dosage: 680 MG, D1, D15
     Route: 041
     Dates: start: 20220614, end: 20220628
  9. ISATUXIMAB [Suspect]
     Active Substance: ISATUXIMAB
     Dosage: 680 MG, BIW
     Route: 041
     Dates: start: 20220712, end: 20220726
  10. ISATUXIMAB [Suspect]
     Active Substance: ISATUXIMAB
     Dosage: 680 MG, D1, D15
     Route: 041
     Dates: start: 20220809, end: 20220823
  11. ISATUXIMAB [Suspect]
     Active Substance: ISATUXIMAB
     Dosage: 680 MG, D1
     Route: 041
     Dates: start: 20220906, end: 20220906
  12. ISATUXIMAB [Suspect]
     Active Substance: ISATUXIMAB
     Dosage: 680 MG, D15
     Route: 065
     Dates: start: 20220111, end: 20220111
  13. DEXAMETHASONE [Suspect]
     Active Substance: DEXAMETHASONE
     Indication: Plasma cell myeloma refractory
     Dosage: 20 MG, OTHER, D1
     Route: 065
     Dates: start: 20211122, end: 20211122
  14. DEXAMETHASONE [Suspect]
     Active Substance: DEXAMETHASONE
     Dosage: 20 MG, OTHER, D1, D2
     Route: 065
     Dates: start: 20211220, end: 20211221
  15. DEXAMETHASONE [Suspect]
     Active Substance: DEXAMETHASONE
     Dosage: 20 MG, OTHER, D1, D2, D8, D9, D15, D16, D22
     Route: 065
     Dates: start: 20220125, end: 20220215
  16. DEXAMETHASONE [Suspect]
     Active Substance: DEXAMETHASONE
     Dosage: 20 MG, OTHER, D1, D2, D8, D9, D15, D16
     Route: 065
     Dates: start: 20220222, end: 20220309
  17. DEXAMETHASONE [Suspect]
     Active Substance: DEXAMETHASONE
     Dosage: 20 MG, OTHER, D1, D2, D8, D9, D15, D16
     Route: 065
     Dates: start: 20220322, end: 20220406
  18. DEXAMETHASONE [Suspect]
     Active Substance: DEXAMETHASONE
     Dosage: 20 MG, OTHER, D1, D2, D8, D9, D15, D16
     Route: 065
     Dates: start: 20220419, end: 20220504
  19. DEXAMETHASONE [Suspect]
     Active Substance: DEXAMETHASONE
     Dosage: 20 MG, OTHER, D1, D2, D8, D9, D15, D16
     Route: 065
     Dates: start: 20220517, end: 20220601
  20. DEXAMETHASONE [Suspect]
     Active Substance: DEXAMETHASONE
     Dosage: 20 MG, OTHER, D1, D2, D8, D9, D15, D16
     Route: 065
     Dates: start: 20220614, end: 20220629
  21. DEXAMETHASONE [Suspect]
     Active Substance: DEXAMETHASONE
     Dosage: 20 MG, OTHER, D1, D2, D8, D9, D15, D16
     Route: 065
     Dates: start: 20220712, end: 20220727
  22. DEXAMETHASONE [Suspect]
     Active Substance: DEXAMETHASONE
     Dosage: 20 MG, OTHER, D1, D2, D8, D9, D15, D16
     Route: 065
     Dates: start: 20220809, end: 20220824
  23. DEXAMETHASONE [Suspect]
     Active Substance: DEXAMETHASONE
     Dosage: 20 MG, OTHER, D1, D2
     Route: 065
     Dates: start: 20220906, end: 20220907
  24. DEXAMETHASONE [Suspect]
     Active Substance: DEXAMETHASONE
     Dosage: 20 MG (D8, D9, D15, D16, D22)
     Route: 065
     Dates: start: 20220104, end: 20220118
  25. DEXAMETHASONE [Suspect]
     Active Substance: DEXAMETHASONE
     Dosage: 20 MG (D1, D2, D8, D16, D15, D22, D9)
     Route: 065
     Dates: start: 20211129, end: 20211214
  26. CARFILZOMIB [Suspect]
     Active Substance: CARFILZOMIB
     Indication: Plasma cell myeloma refractory
     Dosage: 27 MG, D1
     Dates: start: 20211122, end: 20211122
  27. CARFILZOMIB [Suspect]
     Active Substance: CARFILZOMIB
     Dosage: 74 MG, OTHER, D8, D9
     Route: 065
     Dates: start: 20211129, end: 20211130
  28. CARFILZOMIB [Suspect]
     Active Substance: CARFILZOMIB
     Dosage: 74 MG, OTHER, D1, D2
     Route: 065
     Dates: start: 20211220, end: 20211221
  29. CARFILZOMIB [Suspect]
     Active Substance: CARFILZOMIB
     Dosage: 74 MG, OTHER, D1, D2, D8, D9,D15, D16
     Route: 065
     Dates: start: 20220125, end: 20220209
  30. CARFILZOMIB [Suspect]
     Active Substance: CARFILZOMIB
     Dosage: 74 MG, OTHER, D1, D2, D8, D9, D15, D16
     Route: 065
     Dates: start: 20220222, end: 20220309
  31. CARFILZOMIB [Suspect]
     Active Substance: CARFILZOMIB
     Dosage: 74 MG, OTHER, D1, D2, D8, D9,D15, D16
     Route: 065
     Dates: start: 20220322, end: 20220406
  32. CARFILZOMIB [Suspect]
     Active Substance: CARFILZOMIB
     Dosage: 74 MG, OTHER, D1, D2, D8, D9, D15, D16
     Route: 065
     Dates: start: 20220419, end: 20220504
  33. CARFILZOMIB [Suspect]
     Active Substance: CARFILZOMIB
     Dosage: 74 MG, D1, D2, D8, D9, D15, D16
     Route: 065
     Dates: start: 20220517, end: 20220601
  34. CARFILZOMIB [Suspect]
     Active Substance: CARFILZOMIB
     Dosage: 74 MG, OTHER, D1, D2, D8, D9, D15, D16
     Route: 065
     Dates: start: 20220614, end: 20220629
  35. CARFILZOMIB [Suspect]
     Active Substance: CARFILZOMIB
     Dosage: 74 MG, OTHER, D1, D2, D8, D9, D15, D16
     Route: 065
     Dates: start: 20220712, end: 20220727
  36. CARFILZOMIB [Suspect]
     Active Substance: CARFILZOMIB
     Dosage: 74 MG, OTHER, D1, D2, D8, D9,D15, D16
     Route: 065
     Dates: start: 20220809, end: 20220824
  37. CARFILZOMIB [Suspect]
     Active Substance: CARFILZOMIB
     Dosage: 74 MG, OTHER, D1, D2
     Route: 065
     Dates: start: 20220906, end: 20220907
  38. CARFILZOMIB [Suspect]
     Active Substance: CARFILZOMIB
     Dosage: 74 MG (D15, D16, D8, D9)
     Route: 065
     Dates: start: 20220104, end: 20220112
  39. METAMIZOLE [Concomitant]
     Active Substance: METAMIZOLE
     Indication: Bone pain
     Dosage: UNK
     Dates: start: 20170815
  40. HYDROMORPHONE HYDROCHLORIDE [Concomitant]
     Active Substance: HYDROMORPHONE HYDROCHLORIDE
     Indication: Bone pain
     Dosage: UNK
     Dates: start: 20170815
  41. PANTOPRAZOLE [Concomitant]
     Active Substance: PANTOPRAZOLE
     Indication: Gastritis prophylaxis
     Dosage: UNK
     Dates: start: 20201026
  42. PREGABALIN [Concomitant]
     Active Substance: PREGABALIN
     Indication: Bone pain
     Dosage: UNK
     Dates: start: 20170911
  43. MONTELUKAST [Concomitant]
     Active Substance: MONTELUKAST
     Indication: Rhinitis allergic
     Dosage: UNK
     Dates: start: 20211025
  44. ACYCLOVIR [Concomitant]
     Active Substance: ACYCLOVIR
     Indication: Infection prophylaxis
     Dosage: UNK
     Dates: start: 20170911
  45. SULFAMETHOXAZOLE\TRIMETHOPRIM [Concomitant]
     Active Substance: SULFAMETHOXAZOLE\TRIMETHOPRIM
     Indication: Infection prophylaxis
     Dosage: UNK
     Dates: start: 20170911
  46. PAMIDRONATE [Concomitant]
     Active Substance: PAMIDRONATE DISODIUM
     Indication: Osteolysis
     Dosage: UNK
     Dates: start: 20170815
  47. PLATELETS [Concomitant]
     Active Substance: HUMAN PLATELET, ALLOGENIC
     Indication: Thrombocytopenia
     Dosage: UNK
     Dates: start: 20210601
  48. PLATELETS [Concomitant]
     Active Substance: HUMAN PLATELET, ALLOGENIC
     Dosage: UNK
     Route: 065
     Dates: start: 20211108, end: 20211108
  49. PLATELETS [Concomitant]
     Active Substance: HUMAN PLATELET, ALLOGENIC
     Dosage: UNK
     Route: 065
     Dates: start: 20221004, end: 20221004
  50. HUMAN RED BLOOD CELL [Concomitant]
     Active Substance: HUMAN RED BLOOD CELL
     Indication: Anaemia
     Dosage: UNK
     Dates: start: 20210927
  51. HUMAN RED BLOOD CELL [Concomitant]
     Active Substance: HUMAN RED BLOOD CELL
     Indication: Pancytopenia
     Dosage: UNK
     Route: 065
     Dates: start: 20220926, end: 20220926
  52. HUMAN RED BLOOD CELL [Concomitant]
     Active Substance: HUMAN RED BLOOD CELL
     Dosage: UNK
     Route: 065
     Dates: start: 202210, end: 202210
  53. ACETAMINOPHEN [Concomitant]
     Active Substance: ACETAMINOPHEN
     Indication: Pyrexia
     Dosage: UNK
     Dates: start: 20211122, end: 20220906
  54. CLEMASTINE [Concomitant]
     Active Substance: CLEMASTINE
     Indication: Allergy prophylaxis
     Dosage: UNK
     Dates: start: 20211122, end: 20220906
  55. TAMSULOSIN [Concomitant]
     Active Substance: TAMSULOSIN
     Indication: Benign prostatic hyperplasia
     Dosage: UNK
     Dates: start: 2005
  56. ALIZAPRIDE [Concomitant]
     Active Substance: ALIZAPRIDE
     Indication: Nausea
     Dosage: UNK
     Dates: start: 20211102
  57. FOLIC ACID [Concomitant]
     Active Substance: FOLIC ACID
     Indication: Anaemia
     Dosage: UNK
     Dates: start: 20221006
  58. CYANOCOBALAMIN [Concomitant]
     Active Substance: CYANOCOBALAMIN
     Indication: Anaemia
     Dosage: UNK
     Dates: start: 20221006
  59. POLYETHYLENE GLYCOLS [Concomitant]
     Active Substance: POLYETHYLENE GLYCOLS
     Indication: Constipation
     Dosage: UNK UNK, PRN
     Dates: start: 2017
  60. MEROPENEM [Concomitant]
     Active Substance: MEROPENEM
     Indication: Pancytopenia
     Dosage: UNK
     Route: 065
     Dates: start: 202210, end: 20221206
  61. MEROPENEM [Concomitant]
     Active Substance: MEROPENEM
     Indication: Polyneuropathy

REACTIONS (13)
  - Neutropenia [Recovered/Resolved]
  - Neutropenia [Recovered/Resolved]
  - Febrile neutropenia [Recovered/Resolved]
  - Plasma cell leukaemia [Not Recovered/Not Resolved]
  - Haematochezia [Recovered/Resolved]
  - Heart rate increased [Recovered/Resolved]
  - Neutropenia [Recovered/Resolved]
  - General physical health deterioration [Recovered/Resolved]
  - Pulpitis dental [Recovered/Resolved]
  - Haematochezia [Recovered/Resolved]
  - Cough [Recovered/Resolved]
  - Vomiting [Recovered/Resolved]
  - Oedema mucosal [Recovered/Resolved]

NARRATIVE: CASE EVENT DATE: 20211122
